FAERS Safety Report 8537412-0 (Version None)
Quarter: 2012Q3

REPORT INFORMATION
  Report Type: 
  Country: None (occurrence: None)
  Receive Date: 20120725
  Receipt Date: 20120716
  Transmission Date: 20120928
  Serious: Yes (Other)
  Sender: FDA-Public Use
  Company Number: KR-BRISTOL-MYERS SQUIBB COMPANY-16770935

PATIENT
  Age: 72 Year
  Sex: Male

DRUGS (3)
  1. URSA [Concomitant]
  2. VITAMIN B COMPLEX CAP [Concomitant]
  3. BARACLUDE [Suspect]
     Dosage: BARACLUDE 0.5MG

REACTIONS (2)
  - HEPATIC NEOPLASM MALIGNANT [None]
  - ABDOMINAL PAIN UPPER [None]
